FAERS Safety Report 10512568 (Version 1)
Quarter: 2014Q4

REPORT INFORMATION
  Report Type: Report from Study
  Country: US (occurrence: US)
  Receive Date: 20141011
  Receipt Date: 20141011
  Transmission Date: 20150528
  Serious: Yes (Other)
  Sender: FDA-Public Use
  Company Number: PHEH2014US020256

PATIENT
  Age: 31 Year
  Sex: Female
  Weight: 84.35 kg

DRUGS (1)
  1. GILENYA [Suspect]
     Active Substance: FINGOLIMOD HYDROCHLORIDE
     Indication: MULTIPLE SCLEROSIS
     Dosage: 0.5 MG, QD
     Route: 048
     Dates: start: 20140903, end: 20141001

REACTIONS (4)
  - Visual impairment [Recovered/Resolved]
  - Blood pressure increased [Recovered/Resolved]
  - Migraine [Recovered/Resolved]
  - Chest pain [Recovered/Resolved]

NARRATIVE: CASE EVENT DATE: 20141001
